FAERS Safety Report 5854027-3 (Version None)
Quarter: 2008Q3

REPORT INFORMATION
  Report Type: 
  Country: None (occurrence: None)
  Receive Date: 20080822
  Receipt Date: 20080813
  Transmission Date: 20090109
  Serious: Yes (Hospitalization)
  Sender: FDA-Public Use
  Company Number: US-ABBOTT-08P-163-0470720-00

PATIENT
  Sex: Female
  Weight: 90.8 kg

DRUGS (4)
  1. HUMIRA [Suspect]
     Indication: RHEUMATOID ARTHRITIS
     Route: 058
     Dates: start: 20050101, end: 20050101
  2. HUMIRA [Suspect]
     Route: 058
     Dates: start: 20060101, end: 20060101
  3. HUMIRA [Suspect]
     Route: 058
     Dates: start: 20080724
  4. WARFARIN SODIUM [Concomitant]
     Indication: ANTICOAGULANT THERAPY
     Route: 048

REACTIONS (3)
  - ACCIDENTAL EXPOSURE [None]
  - BACK PAIN [None]
  - SHOULDER ARTHROPLASTY [None]
